FAERS Safety Report 9540696 (Version 8)
Quarter: 2014Q1

REPORT INFORMATION
  Report Type: Report from Study
  Country: US (occurrence: US)
  Receive Date: 20130920
  Receipt Date: 20140324
  Transmission Date: 20141002
  Serious: Yes (Hospitalization)
  Sender: FDA-Public Use
  Company Number: US-BRISTOL-MYERS SQUIBB COMPANY-19359439

PATIENT
  Age: 49 Year
  Sex: Male
  Weight: 79.1 kg

DRUGS (20)
  1. NIVOLUMAB [Suspect]
     Indication: METASTATIC RENAL CELL CARCINOMA
     Dosage: 3JUL13:84MG; 24JUL13:79MG; 4SEP13:76MG-1MG/KG?5SEP13-1MG/KG?5SEP13-1MG/KG
     Route: 042
     Dates: start: 20130703
  2. IPILIMUMAB [Suspect]
     Indication: METASTATIC RENAL CELL CARCINOMA
     Dosage: 3JUL13: 252MG; 24JUL13:237MG; 4SEP13:229MG-3MG/KG?5SEP13-3MG/KG?5SEP13-1MG/KG
     Route: 042
     Dates: start: 20130703
  3. ULTRAM [Concomitant]
     Route: 048
     Dates: start: 20130710
  4. PREDNISONE [Concomitant]
     Route: 048
     Dates: end: 20130925
  5. OXYCODONE [Concomitant]
     Route: 048
     Dates: start: 20130903
  6. MYCOPHENOLATE MOFETIL [Concomitant]
     Dosage: 1DF: 2TABS?250MG; 500MG: 19SEP-25SEP?1000MG: 26SEP2013
     Route: 048
     Dates: start: 20130919
  7. LEVOTHYROXINE SODIUM [Concomitant]
     Route: 058
     Dates: start: 20130814
  8. PREDNISONE [Concomitant]
     Route: 048
  9. METFORMIN [Concomitant]
     Route: 048
  10. FAMOTIDINE [Concomitant]
     Route: 048
  11. SULFAMETHOXAZOLE + TRIMETHOPRIM [Concomitant]
     Dosage: 1DF: 1TAB?ON MONDAY,WEDNESDAY,FRIDAY.
     Route: 048
  12. AMLODIPINE [Concomitant]
     Route: 048
  13. SOLU-MEDROL [Concomitant]
     Dosage: ALSO TAKEN 80MG FROM 25SEP2013
     Route: 042
  14. NORMAL SALINE [Concomitant]
     Route: 042
  15. IBUPROFEN [Concomitant]
     Dates: start: 20130711
  16. COLACE [Concomitant]
     Dates: start: 20130716
  17. SODIUM POLYSTYRENE SULFONATE [Concomitant]
     Dosage: ONCE
     Route: 048
  18. NOVOLIN R [Concomitant]
     Dosage: 1DF: 10UNITS?ONCE
     Route: 042
  19. NORMAL SALINE [Concomitant]
     Dosage: 0.9%
     Route: 042
  20. DEXTROSE [Concomitant]
     Dosage: ONCE
     Route: 042

REACTIONS (7)
  - Aspartate aminotransferase increased [Recovered/Resolved with Sequelae]
  - Alanine aminotransferase increased [Recovered/Resolved with Sequelae]
  - Renal failure acute [Recovered/Resolved]
  - Hyponatraemia [Recovered/Resolved with Sequelae]
  - Drug-induced liver injury [Recovered/Resolved]
  - Blood bilirubin increased [Recovered/Resolved]
  - Hyperkalaemia [Recovered/Resolved]
